FAERS Safety Report 15184100 (Version 20)
Quarter: 2025Q2

REPORT INFORMATION
  Report Type: Spontaneous
  Country: US (occurrence: US)
  Receive Date: 20180723
  Receipt Date: 20250502
  Transmission Date: 20250716
  Serious: No
  Sender: PFIZER
  Company Number: US-PFIZER INC-2015331180

PATIENT
  Age: 64 Year
  Sex: Male
  Weight: 99 kg

DRUGS (18)
  1. XELJANZ [Suspect]
     Active Substance: TOFACITINIB CITRATE
     Indication: Rheumatoid arthritis
     Dosage: 5 MG, 2X/DAY
     Route: 048
     Dates: start: 2014
  2. XELJANZ [Suspect]
     Active Substance: TOFACITINIB CITRATE
     Dosage: 5 MG, 2X/DAY
     Route: 048
  3. XELJANZ [Suspect]
     Active Substance: TOFACITINIB CITRATE
     Route: 048
  4. XELJANZ [Suspect]
     Active Substance: TOFACITINIB CITRATE
     Dosage: 5 MG, 1X/DAY
     Route: 048
  5. IBUPROFEN [Concomitant]
     Active Substance: IBUPROFEN
     Indication: Condition aggravated
     Dosage: 800 MG, 3X/DAY
  6. IBUPROFEN [Concomitant]
     Active Substance: IBUPROFEN
  7. TRAMADOL [Concomitant]
     Active Substance: TRAMADOL
     Indication: Pain
  8. TRAMADOL [Concomitant]
     Active Substance: TRAMADOL
     Indication: Condition aggravated
     Dosage: UNK, DAILY (4-6 TRAMADOL A DAY)
  9. TRAMADOL [Concomitant]
     Active Substance: TRAMADOL
  10. MOTRIN [Concomitant]
     Active Substance: IBUPROFEN
  11. DOXYCYCLINE [Concomitant]
     Active Substance: DOXYCYCLINE
  12. FLEXERIL [Concomitant]
     Active Substance: CYCLOBENZAPRINE HYDROCHLORIDE
     Indication: Muscle spasms
     Dosage: 10 MG, 3X/DAY (AS NEEDED)
     Route: 048
     Dates: start: 20250117, end: 20250410
  13. CARDURA [Concomitant]
     Active Substance: DOXAZOSIN MESYLATE
     Dosage: 4 MG, DAILY
     Route: 048
     Dates: start: 20241210
  14. PLAQUENIL [Concomitant]
     Active Substance: HYDROXYCHLOROQUINE SULFATE
     Dosage: 400 MG, DAILY (TAKE 2 TABLETS)
     Route: 048
     Dates: start: 20250404
  15. MYCOLOG II [Concomitant]
     Dates: start: 20241014
  16. DELTASONE [Concomitant]
     Active Substance: PREDNISONE
     Dates: start: 20250410, end: 20250410
  17. ULTRAM [Concomitant]
     Active Substance: TRAMADOL HYDROCHLORIDE
     Indication: Pain
     Dosage: 50 MG, 2X/DAY (AS NEEDED)
     Route: 048
     Dates: start: 20241015, end: 20250413
  18. RINVOQ [Concomitant]
     Active Substance: UPADACITINIB
     Dosage: 15 MG, DAILY
     Route: 048
     Dates: start: 20250404

REACTIONS (1)
  - Therapeutic response unexpected [Unknown]
